FAERS Safety Report 7432977-4 (Version None)
Quarter: 2011Q2

REPORT INFORMATION
  Report Type: 
  Country: None (occurrence: None)
  Receive Date: 20110422
  Receipt Date: 20110419
  Transmission Date: 20111010
  Serious: No
  Sender: FDA-Public Use
  Company Number: US-PFIZER INC-2009222885

PATIENT
  Sex: Male
  Weight: 86.168 kg

DRUGS (1)
  1. CHANTIX [Suspect]
     Indication: SMOKING CESSATION THERAPY
     Dosage: 0.5 MG, 1X/DAY
     Dates: start: 20090318, end: 20090101

REACTIONS (4)
  - SLEEP DISORDER [None]
  - FEELING ABNORMAL [None]
  - DEPRESSION [None]
  - EUPHORIC MOOD [None]
